FAERS Safety Report 14939881 (Version 4)
Quarter: 2018Q3

REPORT INFORMATION
  Report Type: Report from Study
  Country: US (occurrence: US)
  Receive Date: 20180525
  Receipt Date: 20180806
  Transmission Date: 20181010
  Serious: Yes (Hospitalization, Other)
  Sender: FDA-Public Use
  Company Number: US-BAYER-2018-077695

PATIENT
  Age: 58 Year
  Sex: Male

DRUGS (1)
  1. NEXAVAR [Suspect]
     Active Substance: SORAFENIB
     Indication: HEPATIC CANCER
     Dosage: 400 MG, BID
     Route: 048
     Dates: start: 20180412, end: 20180717

REACTIONS (17)
  - Type 2 diabetes mellitus [None]
  - Cold sweat [Not Recovered/Not Resolved]
  - Abdominal pain upper [None]
  - Off label use [None]
  - Drug dose omission [None]
  - Weight fluctuation [None]
  - Tremor [Not Recovered/Not Resolved]
  - Abdominal pain [Recovering/Resolving]
  - Abdominal pain [None]
  - Fatigue [None]
  - Toothache [None]
  - Treatment noncompliance [None]
  - Hepatic cancer [None]
  - Haematochezia [Not Recovered/Not Resolved]
  - Constipation [None]
  - Oedema peripheral [None]
  - Drug ineffective [None]

NARRATIVE: CASE EVENT DATE: 2018
